FAERS Safety Report 5959272-4 (Version None)
Quarter: 2008Q4

REPORT INFORMATION
  Report Type: 
  Country: None (occurrence: None)
  Receive Date: 20081117
  Receipt Date: 20081106
  Transmission Date: 20090506
  Serious: Yes (Other)
  Sender: FDA-Public Use
  Company Number: 2008SP022782

PATIENT
  Age: 50 Year
  Sex: Male

DRUGS (10)
  1. PEG-INTRON [Suspect]
     Indication: HEPATITIS C
     Dosage: 80 MCG; QW;
     Dates: start: 20031101, end: 20040901
  2. RIBAVIRIN [Suspect]
     Indication: HEPATITIS C
     Dosage: 2 DF; QAM;, 3 DF; QPM;
     Dates: start: 20031101, end: 20040901
  3. RIBAVIRIN [Suspect]
     Indication: HEPATITIS C
     Dosage: 2 DF; QAM;, 3 DF; QPM;
     Dates: start: 20031101, end: 20040901
  4. STAVUDINE [Concomitant]
  5. DIDANOSINE [Concomitant]
  6. STAVUDINE [Concomitant]
  7. LAMIVUDINE [Concomitant]
  8. TENOFOVIR [Concomitant]
  9. STAVUDINE [Concomitant]
  10. DIDANOSINE [Concomitant]

REACTIONS (4)
  - ABDOMINAL PAIN UPPER [None]
  - ASTHENIA [None]
  - ORAL LICHEN PLANUS [None]
  - ORAL PAIN [None]
